FAERS Safety Report 17407224 (Version 3)
Quarter: 2020Q1

REPORT INFORMATION
  Report Type: Spontaneous
  Country: US (occurrence: US)
  Receive Date: 20200212
  Receipt Date: 20200318
  Transmission Date: 20200409
  Serious: No
  Sender: FDA-Public Use
  Company Number: US-DSJP-DSU-2020-104903

PATIENT

DRUGS (1)
  1. TURALIO [Suspect]
     Active Substance: PEXIDARTINIB HYDROCHLORIDE
     Indication: SYNOVITIS
     Dosage: 400 MG, BID
     Route: 048
     Dates: start: 20200124, end: 20200217

REACTIONS (10)
  - Anxiety [Unknown]
  - Pyrexia [Not Recovered/Not Resolved]
  - Hypoaesthesia [Unknown]
  - Hepatic enzyme increased [Unknown]
  - Hot flush [Unknown]
  - Abdominal discomfort [Recovering/Resolving]
  - Thrombosis [Unknown]
  - Fatigue [Unknown]
  - Faeces soft [Unknown]
  - Rash [Unknown]

NARRATIVE: CASE EVENT DATE: 2020
